FAERS Safety Report 11075382 (Version 2)
Quarter: 2015Q2

REPORT INFORMATION
  Report Type: Report from Study
  Country: US (occurrence: US)
  Receive Date: 20150429
  Receipt Date: 20150602
  Transmission Date: 20150821
  Serious: Yes (Hospitalization)
  Sender: FDA-Public Use
  Company Number: US-ACTELION-A-US2015-116857

PATIENT
  Age: 7 Year
  Sex: Female

DRUGS (2)
  1. SILDENAFIL. [Suspect]
     Active Substance: SILDENAFIL
     Indication: PRODUCT USED FOR UNKNOWN INDICATION
     Dosage: 4 CC, TID
     Route: 048
     Dates: start: 201301
  2. TRACLEER [Suspect]
     Active Substance: BOSENTAN\BOSENTAN MONOHYDRATE
     Indication: PULMONARY HYPERTENSION
     Dosage: 31.25 MG, BID
     Route: 048
     Dates: start: 20150123

REACTIONS (9)
  - Pyrexia [Unknown]
  - Headache [Unknown]
  - Somnolence [Unknown]
  - Irritability [Unknown]
  - Asthma [Unknown]
  - Chest pain [Unknown]
  - Rhinovirus infection [Unknown]
  - Mood altered [Unknown]
  - Fatigue [Unknown]
